FAERS Safety Report 4619961-0 (Version None)
Quarter: 2005Q1

REPORT INFORMATION
  Report Type: 
  Country: None (occurrence: None)
  Receive Date: 20050328
  Receipt Date: 20050316
  Transmission Date: 20050727
  Serious: Yes (Hospitalization)
  Sender: FDA-Public Use
  Company Number: FR-ABBOTT-05P-056-0294395-00

PATIENT
  Age: 46 Year
  Sex: Male

DRUGS (2)
  1. DEPAKENE [Suspect]
     Indication: EPILEPSY
     Route: 048
     Dates: start: 20041205, end: 20050126
  2. CLOBAZAM [Concomitant]
     Indication: EPILEPSY
     Route: 048
     Dates: start: 20041101

REACTIONS (3)
  - CHOLELITHIASIS [None]
  - HEPATIC NECROSIS [None]
  - THROMBOCYTOPENIA [None]
